FAERS Safety Report 21162333 (Version 2)
Quarter: 2022Q3

REPORT INFORMATION
  Report Type: Spontaneous
  Country: US (occurrence: US)
  Receive Date: 20220802
  Receipt Date: 20220914
  Transmission Date: 20221026
  Serious: No
  Sender: FDA-Public Use
  Company Number: US-PFIZER INC-202201018014

PATIENT
  Age: 48 Year
  Sex: Male
  Weight: 68.04 kg

DRUGS (4)
  1. PAXLOVID [Suspect]
     Active Substance: NIRMATRELVIR\RITONAVIR
     Indication: COVID-19 treatment
     Dosage: 2 BIG WHITE HUGE TABLETS. 2 IN THE MORNING AND 2 IN THE EVENING BY MOUTH
     Route: 048
     Dates: start: 20220725
  2. NITROFURANTOIN [Concomitant]
     Active Substance: NITROFURANTOIN
     Indication: Urinary tract infection
     Dosage: 100 MG, 2X/DAY (ONE CAPSULE TWICE DAILY AFTER MEALS)
  3. GABAPENTIN [Concomitant]
     Active Substance: GABAPENTIN
     Indication: Back pain
     Dosage: 600 MG, 2X/DAY (2 IN THE EVENING BY MOUTH FOR 1200 MG TOTAL)
  4. PROMETHAZINE [Concomitant]
     Active Substance: PROMETHAZINE HYDROCHLORIDE
     Indication: Vomiting
     Dosage: 25 MG, 1X/DAY (ONE TABLET AS NEEDED)

REACTIONS (2)
  - Tremor [Not Recovered/Not Resolved]
  - Incorrect dose administered [Unknown]

NARRATIVE: CASE EVENT DATE: 20220725
